FAERS Safety Report 6738708-5 (Version None)
Quarter: 2010Q2

REPORT INFORMATION
  Report Type: 
  Country: None (occurrence: None)
  Receive Date: 20100524
  Receipt Date: 20100519
  Transmission Date: 20101027
  Serious: Yes (Hospitalization)
  Sender: FDA-Public Use
  Company Number: US-GILEAD-2010-0029305

PATIENT
  Sex: Female
  Weight: 64.922 kg

DRUGS (4)
  1. LETAIRIS [Suspect]
     Indication: PULMONARY ARTERIAL HYPERTENSION
     Route: 048
     Dates: start: 20091120
  2. ALEVE (CAPLET) [Concomitant]
  3. GABAPENTIN [Concomitant]
  4. TYLENOL [Concomitant]

REACTIONS (1)
  - MIGRAINE [None]
